FAERS Safety Report 6358183-2 (Version None)
Quarter: 2009Q3

REPORT INFORMATION
  Report Type: 
  Country: None (occurrence: None)
  Receive Date: 20090916
  Receipt Date: 20090908
  Transmission Date: 20100115
  Serious: Yes (Hospitalization)
  Sender: FDA-Public Use
  Company Number: US-ELI_LILLY_AND_COMPANY-US200909002901

PATIENT
  Sex: Female
  Weight: 99.773 kg

DRUGS (13)
  1. BYETTA [Suspect]
     Indication: TYPE 2 DIABETES MELLITUS
     Dosage: 5 UG, 2/D
     Route: 058
     Dates: start: 20080630, end: 20090603
  2. BYETTA [Suspect]
     Dosage: 10 UG, 2/D
     Route: 058
     Dates: start: 20090603
  3. GLIPIZIDE [Concomitant]
     Indication: TYPE 2 DIABETES MELLITUS
     Dosage: 10 MG, DAILY (1/D)
  4. METFORMIN HCL [Concomitant]
     Indication: TYPE 2 DIABETES MELLITUS
     Dosage: 1000 MG, 2/D
  5. VASOPRIL [Concomitant]
     Dosage: 40 MG, EACH EVENING
  6. COREG CR [Concomitant]
     Dosage: 10 MG, EACH EVENING
  7. PLAVIX [Concomitant]
     Indication: STENT PLACEMENT
     Dosage: 75 MG, DAILY (1/D)
  8. ZOCOR [Concomitant]
     Indication: BLOOD TRIGLYCERIDES
     Dosage: 40 MG, EACH EVENING
  9. TRICOR [Concomitant]
     Indication: BLOOD TRIGLYCERIDES
     Dosage: 145 MG, DAILY (1/D)
  10. MULTI-VITAMIN [Concomitant]
     Dosage: UNK, DAILY (1/D)
  11. BIAXIN [Concomitant]
     Indication: PNEUMONIA
     Dosage: UNK, UNKNOWN
     Dates: start: 20090101
  12. PREDNISONE [Concomitant]
     Indication: PNEUMONIA
     Dosage: UNK, UNKNOWN
     Dates: start: 20090101
  13. LEVAQUIN [Concomitant]
     Indication: PNEUMONIA
     Dosage: UNK, UNKNOWN
     Dates: start: 20090101

REACTIONS (6)
  - CONTRAST MEDIA REACTION [None]
  - DYSPNOEA [None]
  - GENERALISED OEDEMA [None]
  - MALAISE [None]
  - PNEUMONIA [None]
  - PRURITUS GENERALISED [None]
